FAERS Safety Report 18619621 (Version 3)
Quarter: 2022Q1

REPORT INFORMATION
  Report Type: Spontaneous
  Country: US (occurrence: US)
  Receive Date: 20201215
  Receipt Date: 20220228
  Transmission Date: 20220423
  Serious: Yes (Other)
  Sender: FDA-Public Use
  Company Number: US-PFIZER INC-2020037126

PATIENT
  Age: 68 Year
  Sex: Female
  Weight: 53.07 kg

DRUGS (2)
  1. IBRANCE [Suspect]
     Active Substance: PALBOCICLIB
     Indication: Breast cancer stage IV
     Dosage: 125 MG, CYCLIC (TAKE ONE DAILY BY MOUTH FOR 21 AND OFF FOR 7 DAYS)
     Dates: end: 20220213
  2. LETROZOLE [Concomitant]
     Active Substance: LETROZOLE
     Indication: Breast cancer stage IV
     Dosage: 2.5 MG, DAILY
     Route: 048

REACTIONS (12)
  - Immunosuppression [Unknown]
  - Cataract [Unknown]
  - White blood cell count decreased [Unknown]
  - Nasopharyngitis [Recovered/Resolved]
  - Blister [Unknown]
  - Nail growth abnormal [Unknown]
  - Alopecia [Unknown]
  - Decreased appetite [Unknown]
  - Taste disorder [Unknown]
  - Fatigue [Unknown]
  - Illness [Unknown]
  - Onychoclasis [Unknown]
